FAERS Safety Report 25753749 (Version 1)
Quarter: 2025Q3

REPORT INFORMATION
  Report Type: Spontaneous
  Country: US (occurrence: US)
  Receive Date: 20250903
  Receipt Date: 20250903
  Transmission Date: 20251020
  Serious: No
  Sender: RANBAXY
  Company Number: US-SUN PHARMACEUTICAL INDUSTRIES LTD-2024R1-481174

PATIENT
  Sex: Female

DRUGS (2)
  1. GUAIFENESIN [Suspect]
     Active Substance: GUAIFENESIN
     Indication: Sinus congestion
     Route: 065
     Dates: start: 202403
  2. GUAIFENESIN [Suspect]
     Active Substance: GUAIFENESIN
     Indication: Seasonal allergy

REACTIONS (1)
  - Expired product administered [Unknown]
